FAERS Safety Report 10644624 (Version 3)
Quarter: 2015Q1

REPORT INFORMATION
  Report Type: Spontaneous
  Country: JP (occurrence: JP)
  Receive Date: 20141210
  Receipt Date: 20150129
  Transmission Date: 20150720
  Serious: Yes (Hospitalization)
  Sender: FDA-Public Use
  Company Number: JP-ROCHE-1505926

PATIENT
  Age: 5 Decade
  Sex: Male
  Weight: 77 kg

DRUGS (6)
  1. ELPLAT [Suspect]
     Active Substance: OXALIPLATIN
     Indication: COLON CANCER METASTATIC
     Dosage: DOSAGE IS UNCERTAIN
     Route: 041
  2. 5-FU [Suspect]
     Active Substance: FLUOROURACIL
     Indication: COLON CANCER METASTATIC
     Dosage: DOSAGE IS UNCERTAIN
     Route: 040
  3. AVASTIN [Suspect]
     Active Substance: BEVACIZUMAB
     Indication: COLON CANCER METASTATIC
     Dosage: DOSAGE IS UNCERTAIN.
     Route: 041
  4. 5-FU [Suspect]
     Active Substance: FLUOROURACIL
     Indication: COLON CANCER METASTATIC
     Dosage: DOSAGE IS UNCERTAIN
     Route: 041
  5. CALCIUM LEVOFOLINATE [Suspect]
     Active Substance: LEVOLEUCOVORIN CALCIUM
     Indication: COLON CANCER METASTATIC
     Route: 041
  6. AVASTIN [Suspect]
     Active Substance: BEVACIZUMAB
     Indication: HEPATIC CANCER METASTATIC

REACTIONS (1)
  - Tumour lysis syndrome [Recovered/Resolved]
